FAERS Safety Report 8106704-1 (Version None)
Quarter: 2012Q1

REPORT INFORMATION
  Report Type: 
  Country: None (occurrence: None)
  Receive Date: 20120202
  Receipt Date: 20120118
  Transmission Date: 20120608
  Serious: Yes (Other)
  Sender: FDA-Public Use
  Company Number: US-TYCO HEALTHCARE/MALLINCKRODT-T201100169

PATIENT

DRUGS (3)
  1. DEMEROL [Suspect]
  2. PAMELOR [Suspect]
     Dosage: 75 MG, 6 X PER DAY
     Dates: start: 20110113, end: 20110118
  3. TYLENOL (CAPLET) [Concomitant]
     Dosage: 500 MG TWO TABS Q6

REACTIONS (22)
  - MALAISE [None]
  - CEREBRAL CYST [None]
  - ABDOMINAL PAIN [None]
  - ARTHRALGIA [None]
  - CRYING [None]
  - PAIN IN EXTREMITY [None]
  - VOMITING [None]
  - DRY MOUTH [None]
  - FATIGUE [None]
  - WEIGHT INCREASED [None]
  - PALPITATIONS [None]
  - OVERDOSE [None]
  - NAUSEA [None]
  - RED BLOOD CELL COUNT INCREASED [None]
  - PELVIC PAIN [None]
  - DRUG DISPENSING ERROR [None]
  - INSOMNIA [None]
  - HEADACHE [None]
  - VISION BLURRED [None]
  - DIZZINESS [None]
  - ANGER [None]
  - TREMOR [None]
